FAERS Safety Report 16126739 (Version 1)
Quarter: 2019Q1

REPORT INFORMATION
  Report Type: Spontaneous
  Country: FR (occurrence: FR)
  Receive Date: 20190328
  Receipt Date: 20190328
  Transmission Date: 20190418
  Serious: Yes (Hospitalization)
  Sender: FDA-Public Use
  Company Number: FR-SA-2019SA077083

PATIENT
  Age: 90 Year
  Sex: Female

DRUGS (5)
  1. MOLSIDOMINE [Interacting]
     Active Substance: MOLSIDOMINE
     Indication: ANGINA PECTORIS
     Dosage: 1 MG, QD
     Route: 048
  2. LEVOTHYROX [Concomitant]
     Active Substance: LEVOTHYROXINE
     Dosage: UNK
  3. TOCOPHEROL TEVA [Concomitant]
     Dosage: UNK
  4. IRBESARTAN. [Suspect]
     Active Substance: IRBESARTAN
     Indication: HYPERTENSION
     Dosage: 75 MG, QD
     Route: 048
  5. ESCITALOPRAM ARROW [Concomitant]
     Active Substance: ESCITALOPRAM OXALATE
     Dosage: UNK

REACTIONS (3)
  - Drug interaction [Unknown]
  - Fall [Unknown]
  - Malaise [Recovered/Resolved]

NARRATIVE: CASE EVENT DATE: 20190112
